FAERS Safety Report 8955629 (Version 2)
Quarter: 2012Q4

REPORT INFORMATION
  Report Type: 
  Country: ES (occurrence: ES)
  Receive Date: 20121210
  Receipt Date: 20121224
  Transmission Date: 20130627
  Serious: Yes (Death)
  Sender: FDA-Public Use
  Company Number: ES-BRISTOL-MYERS SQUIBB COMPANY-17164468

PATIENT

DRUGS (1)
  1. YERVOY [Suspect]
     Dates: start: 201207

REACTIONS (1)
  - Malignant neoplasm progression [Fatal]
